FAERS Safety Report 14139039 (Version 2)
Quarter: 2017Q4

REPORT INFORMATION
  Report Type: Spontaneous
  Country: US (occurrence: US)
  Receive Date: 20171027
  Receipt Date: 20171027
  Transmission Date: 20180321
  Serious: No
  Sender: FDA-Public Use
  Company Number: PHEH2017US034684

PATIENT
  Sex: Female

DRUGS (1)
  1. PILOCARPINE HCL [Suspect]
     Active Substance: PILOCARPINE HYDROCHLORIDE
     Indication: PRODUCT USED FOR UNKNOWN INDICATION
     Dosage: 1 GTT, (AT NIGHT)
     Route: 047
     Dates: start: 20171016

REACTIONS (3)
  - Burning sensation [Not Recovered/Not Resolved]
  - Eye pain [Not Recovered/Not Resolved]
  - Sinusitis [Not Recovered/Not Resolved]

NARRATIVE: CASE EVENT DATE: 20171016
